FAERS Safety Report 10900685 (Version 1)
Quarter: 2015Q1

REPORT INFORMATION
  Report Type: Spontaneous
  Country: US (occurrence: None)
  Receive Date: 20150303
  Receipt Date: 20150303
  Transmission Date: 20150721
  Serious: No
  Sender: FDA-Public Use
  Company Number: None

PATIENT
  Age: 25 Year
  Sex: Female

DRUGS (1)
  1. HUMIRA [Suspect]
     Active Substance: ADALIMUMAB
     Indication: COLITIS ULCERATIVE
     Dosage: INJECT 40 MG
     Route: 058

REACTIONS (3)
  - Urticaria [None]
  - Injection site urticaria [None]
  - Rash [None]

NARRATIVE: CASE EVENT DATE: 20150202
